FAERS Safety Report 4332749-3 (Version None)
Quarter: 2004Q1

REPORT INFORMATION
  Report Type: 
  Country: None (occurrence: None)
  Receive Date: 20040330
  Receipt Date: 20040318
  Transmission Date: 20041129
  Serious: No
  Sender: FDA-Public Use
  Company Number: 04P-163-0254478-00

PATIENT
  Age: 68 Year
  Sex: Female

DRUGS (6)
  1. HUMIRA [Suspect]
     Indication: RHEUMATOID ARTHRITIS
     Dosage: 40 MG, 1 IN 2 WK, SUBCUTANEOUS
     Route: 058
     Dates: start: 20040201
  2. PREDNISONE [Concomitant]
  3. PROPRANOLOL [Concomitant]
  4. SERTRALINE HYDROCHLORIDE [Concomitant]
  5. RABEPRAZOLE SODIUM [Concomitant]
  6. ROFECOXIB [Concomitant]

REACTIONS (2)
  - MYCOBACTERIUM AVIUM COMPLEX INFECTION [None]
  - SPUTUM CULTURE POSITIVE [None]
